FAERS Safety Report 6231013-5 (Version None)
Quarter: 2009Q2

REPORT INFORMATION
  Report Type: 
  Country: None (occurrence: None)
  Receive Date: 20090616
  Receipt Date: 20090609
  Transmission Date: 20091009
  Serious: Yes (Hospitalization)
  Sender: FDA-Public Use
  Company Number: FR-ASTRAZENECA-2009CG01178

PATIENT
  Age: 27325 Day
  Sex: Male

DRUGS (12)
  1. CRESTOR [Suspect]
     Indication: HYPERCHOLESTEROLAEMIA
     Route: 048
     Dates: end: 20090519
  2. COUMADIN [Interacting]
     Indication: THROMBOSIS PROPHYLAXIS
     Route: 048
     Dates: start: 20080101, end: 20090519
  3. COUMADIN [Interacting]
     Route: 048
     Dates: start: 20090520, end: 20090524
  4. KARDEGIC [Interacting]
     Indication: THROMBOSIS PROPHYLAXIS
     Route: 048
  5. SUTENT [Interacting]
     Indication: RENAL CANCER
     Route: 048
     Dates: start: 20090429
  6. CORDARONE [Interacting]
     Indication: ATRIAL FIBRILLATION
     Route: 048
     Dates: start: 20080101
  7. TRIFLUCAN [Interacting]
     Indication: MYCOSIS FUNGOIDES
     Route: 048
     Dates: start: 20090429
  8. DETENSIEL [Concomitant]
  9. PERINDOPRIL ERBUMINE [Concomitant]
  10. EZETROL [Concomitant]
     Dates: end: 20090501
  11. GLUCOR [Concomitant]
     Route: 048
  12. DAONIL [Concomitant]
     Dates: end: 20090501

REACTIONS (3)
  - DRUG INTERACTION [None]
  - GINGIVAL BLEEDING [None]
  - HAEMOPTYSIS [None]
